FAERS Safety Report 23353685 (Version 1)
Quarter: 2024Q1

REPORT INFORMATION
  Report Type: Spontaneous
  Country: US (occurrence: US)
  Receive Date: 20240101
  Receipt Date: 20240101
  Transmission Date: 20240410
  Serious: No
  Sender: FDA-Public Use
  Company Number: US-PURDUE PHARMA-USA-2023-0306711

PATIENT
  Age: 74 Year
  Sex: Male

DRUGS (3)
  1. OXYCODONE HYDROCHLORIDE [Suspect]
     Active Substance: OXYCODONE HYDROCHLORIDE
     Indication: Product used for unknown indication
     Dosage: 30 MILLIGRAM
     Route: 065
  2. OXYMORPHONE [Suspect]
     Active Substance: OXYMORPHONE
     Indication: Product used for unknown indication
     Dosage: 40 MILLIGRAM
     Route: 065
  3. PERCOCET [Suspect]
     Active Substance: ACETAMINOPHEN\OXYCODONE HYDROCHLORIDE
     Indication: Product used for unknown indication
     Dosage: 10 TO 325 MILLIGRAMS
     Route: 065

REACTIONS (1)
  - Drug diversion [Unknown]
